FAERS Safety Report 25659990 (Version 1)
Quarter: 2025Q3

REPORT INFORMATION
  Report Type: Spontaneous
  Country: CL (occurrence: CL)
  Receive Date: 20250808
  Receipt Date: 20250808
  Transmission Date: 20251020
  Serious: Yes (Other)
  Sender: SANDOZ
  Company Number: CL-002147023-NVSC2025CL047015

PATIENT
  Age: 46 Year
  Sex: Female

DRUGS (5)
  1. ALPELISIB [Suspect]
     Active Substance: ALPELISIB
     Indication: Breast cancer
     Dosage: 300 MG, QD
     Route: 065
  2. ALPELISIB [Suspect]
     Active Substance: ALPELISIB
     Indication: Type 1 diabetes mellitus
  3. FULVESTRANT [Suspect]
     Active Substance: FULVESTRANT
     Indication: Product used for unknown indication
     Route: 065
  4. EMPAGLIFLOZIN\METFORMIN HYDROCHLORIDE [Concomitant]
     Active Substance: EMPAGLIFLOZIN\METFORMIN HYDROCHLORIDE
     Indication: Product used for unknown indication
     Route: 065
  5. LINAGLIPTIN [Concomitant]
     Active Substance: LINAGLIPTIN
     Indication: Product used for unknown indication
     Route: 065

REACTIONS (24)
  - Metastases to lung [Recovered/Resolved]
  - Pulmonary mass [Recovered/Resolved]
  - Hilar lymphadenopathy [Not Recovered/Not Resolved]
  - Lymphadenopathy mediastinal [Not Recovered/Not Resolved]
  - Hepatic steatosis [Unknown]
  - Red cell distribution width increased [Unknown]
  - Anisocytosis [Unknown]
  - Reticulocyte percentage increased [Unknown]
  - Red blood cell sedimentation rate increased [Unknown]
  - Tri-iodothyronine free increased [Recovered/Resolved]
  - Blood cholesterol increased [Unknown]
  - Blood phosphorus increased [Recovered/Resolved]
  - Aspartate aminotransferase decreased [Recovered/Resolved]
  - Glucose urine present [Unknown]
  - Bacterial test positive [Unknown]
  - Urine abnormality [Unknown]
  - Urinary sediment present [Unknown]
  - Neutrophil toxic granulation present [Unknown]
  - Eosinophil percentage increased [Unknown]
  - Tri-iodothyronine free increased [Unknown]
  - Crystal urine present [Unknown]
  - Blood thyroid stimulating hormone increased [Unknown]
  - Blood lactate dehydrogenase increased [Unknown]
  - Blood glucose increased [Unknown]

NARRATIVE: CASE EVENT DATE: 20240701
